FAERS Safety Report 6148155-5 (Version None)
Quarter: 2009Q2

REPORT INFORMATION
  Report Type: 
  Country: None (occurrence: None)
  Receive Date: 20090402
  Receipt Date: 20090113
  Transmission Date: 20091009
  Serious: No
  Sender: FDA-Public Use
  Company Number: 1000004717

PATIENT
  Age: 64 Year
  Sex: Male

DRUGS (3)
  1. BYSTOLIC [Suspect]
     Indication: HYPERTENSION
     Dosage: 5 MG (5 MG, 1 IN 1 D), ORAL
     Route: 048
     Dates: start: 20081204, end: 20081209
  2. ZESTRIL [Concomitant]
  3. GLUCOPHAGE [Concomitant]

REACTIONS (2)
  - COUGH [None]
  - DIARRHOEA [None]
